FAERS Safety Report 8092951-4 (Version None)
Quarter: 2012Q1

REPORT INFORMATION
  Report Type: 
  Country: None (occurrence: None)
  Receive Date: 20120125
  Receipt Date: 20120103
  Transmission Date: 20120608
  Serious: Yes (Disabling)
  Sender: FDA-Public Use
  Company Number: 1022556-2012-00004

PATIENT
  Age: 34 Year
  Sex: Female

DRUGS (1)
  1. ICY HOT CHILL STICK 1.75 OZ [Suspect]
     Indication: MYALGIA
     Dosage: TOPICAL  ONCE
     Route: 061

REACTIONS (1)
  - THERMAL BURN [None]
